FAERS Safety Report 15824188 (Version 2)
Quarter: 2019Q1

REPORT INFORMATION
  Report Type: Report from Study
  Country: US (occurrence: US)
  Receive Date: 20190114
  Receipt Date: 20190312
  Transmission Date: 20190417
  Serious: Yes (Other)
  Sender: FDA-Public Use
  Company Number: US-ALEXION PHARMACEUTICALS INC.-A201900390

PATIENT
  Sex: Female

DRUGS (1)
  1. SOLIRIS [Suspect]
     Active Substance: ECULIZUMAB
     Indication: MYASTHENIA GRAVIS
     Dosage: 900 MG, QW
     Route: 042
     Dates: start: 20181221

REACTIONS (6)
  - Intervertebral disc protrusion [Unknown]
  - Musculoskeletal pain [Unknown]
  - Spinal cord compression [Unknown]
  - Adverse event [Unknown]
  - Neck pain [Unknown]
  - Back pain [Unknown]

NARRATIVE: CASE EVENT DATE: 20181229
